FAERS Safety Report 13898393 (Version 1)
Quarter: 2017Q3

REPORT INFORMATION
  Report Type: Spontaneous
  Country: US (occurrence: US)
  Receive Date: 20170823
  Receipt Date: 20170823
  Transmission Date: 20171127
  Serious: Yes (Other)
  Sender: FDA-Public Use
  Company Number: US-SA-2017SA150310

PATIENT
  Sex: Male

DRUGS (1)
  1. LOVENOX [Suspect]
     Active Substance: ENOXAPARIN SODIUM
     Indication: STENT PLACEMENT
     Route: 065

REACTIONS (3)
  - Drug dose omission [Unknown]
  - Skin discolouration [Unknown]
  - Renal cancer [Unknown]
